FAERS Safety Report 4479708-8 (Version None)
Quarter: 2004Q4

REPORT INFORMATION
  Report Type: 
  Country: None (occurrence: None)
  Receive Date: 20041015
  Receipt Date: 20040929
  Transmission Date: 20050328
  Serious: Yes (Life-Threatening)
  Sender: FDA-Public Use
  Company Number: DSA_25114_2004

PATIENT
  Age: 76 Year
  Sex: Male

DRUGS (2)
  1. RENIVACE [Suspect]
     Dosage: 1.25 MG Q DAY PO
     Route: 048
  2. VANCOMYCIN HCL [Suspect]
     Dosage: DF

REACTIONS (1)
  - INTERSTITIAL LUNG DISEASE [None]
